FAERS Safety Report 9243147 (Version 2)
Quarter: 2013Q3

REPORT INFORMATION
  Report Type: Spontaneous
  Country: DE (occurrence: DE)
  Receive Date: 20130419
  Receipt Date: 20130724
  Transmission Date: 20140515
  Serious: Yes (Other)
  Sender: FDA-Public Use
  Company Number: DE-GILEAD-2013-0073834

PATIENT
  Age: 73 Year
  Sex: Female

DRUGS (10)
  1. RANOLAZINE [Suspect]
     Indication: PRODUCT USED FOR UNKNOWN INDICATION
     Dosage: 375 MG, QD
     Route: 048
     Dates: start: 20130320, end: 20130411
  2. BISOHEXAL [Concomitant]
     Dosage: 10 MG, QD
  3. HERZ ASS [Concomitant]
     Dosage: 100 MG, QD
  4. PANTOPRAZOLE [Concomitant]
     Dosage: 40 MG, QD
  5. L-THYROXIN [Concomitant]
     Dosage: 50 ?G, QD
  6. DIGIMERCK [Concomitant]
     Dosage: 0.07 MG, QD
  7. TRIAMTEREN HCT [Concomitant]
     Dosage: UNK
  8. MARCUMAR [Concomitant]
     Dosage: UNK
  9. ISMN [Concomitant]
     Dosage: 40 MG, QD
  10. AMLODIPINE [Concomitant]
     Dosage: 10 MG, QD

REACTIONS (4)
  - Thirst [Recovered/Resolved]
  - Hallucination [Recovered/Resolved]
  - Dizziness [Recovered/Resolved]
  - Decreased appetite [Recovered/Resolved]
